FAERS Safety Report 14641001 (Version 1)
Quarter: 2018Q1

REPORT INFORMATION
  Report Type: Spontaneous
  Country: US (occurrence: US)
  Receive Date: 20180314
  Receipt Date: 20180314
  Transmission Date: 20180509
  Serious: Yes (Other)
  Sender: FDA-Public Use
  Company Number: None

PATIENT
  Age: 16 Year
  Sex: Female
  Weight: 46.35 kg

DRUGS (9)
  1. VYVANSE [Concomitant]
     Active Substance: LISDEXAMFETAMINE DIMESYLATE
  2. TRETINOIN. [Concomitant]
     Active Substance: TRETINOIN
  3. PROZAC [Concomitant]
     Active Substance: FLUOXETINE HYDROCHLORIDE
  4. ALIVE WOMEN^S ENERGY COMPLETE MULTI-VITAMIN [Concomitant]
  5. TRIAMCINOLONE ACETONIDE. [Concomitant]
     Active Substance: TRIAMCINOLONE ACETONIDE
  6. NICODERM CQ [Suspect]
     Active Substance: NICOTINE
     Indication: SMOKING CESSATION THERAPY
     Dosage: ?          QUANTITY:1 PATCH(ES);OTHER FREQUENCY:EVERY 24 HOURS;?
     Route: 062
     Dates: start: 20170821, end: 20170822
  7. SEROQUEL [Concomitant]
     Active Substance: QUETIAPINE FUMARATE
  8. ADDERALL [Concomitant]
     Active Substance: AMPHETAMINE ASPARTATE\AMPHETAMINE SULFATE\DEXTROAMPHETAMINE SACCHARATE\DEXTROAMPHETAMINE SULFATE
  9. BUSPIRONE HYDROCHLORIDE. [Concomitant]
     Active Substance: BUSPIRONE HYDROCHLORIDE

REACTIONS (9)
  - Peripheral swelling [None]
  - Pain in extremity [None]
  - Dyspnoea [None]
  - Urticaria [None]
  - Pruritus [None]
  - Erythema [None]
  - Myalgia [None]
  - Pharyngeal oedema [None]
  - Application site erythema [None]

NARRATIVE: CASE EVENT DATE: 20170823
